FAERS Safety Report 13046320 (Version 2)
Quarter: 2017Q1

REPORT INFORMATION
  Report Type: Spontaneous
  Country: CN (occurrence: CN)
  Receive Date: 20161220
  Receipt Date: 20170206
  Transmission Date: 20170428
  Serious: Yes (Hospitalization)
  Sender: FDA-Public Use
  Company Number: CN-NOVOPROD-523202

PATIENT
  Age: 69 Year
  Sex: Male

DRUGS (2)
  1. NOVOLIN [Suspect]
     Active Substance: INSULIN HUMAN
     Indication: TYPE 2 DIABETES MELLITUS
     Dosage: 22 IU, QD (14IU IN THE MORNING, 8IU AT NIGHT)
     Route: 058
     Dates: start: 201609
  2. NOVOLIN [Suspect]
     Active Substance: INSULIN HUMAN
     Dosage: 28 IU, QD
     Route: 058
     Dates: end: 20161111

REACTIONS (5)
  - Blood glucose increased [Recovered/Resolved]
  - Pruritus generalised [Recovered/Resolved]
  - Blood pressure systolic increased [Recovered/Resolved]
  - Product quality issue [Unknown]
  - Acute coronary syndrome [Recovered/Resolved]

NARRATIVE: CASE EVENT DATE: 201610
